FAERS Safety Report 5519803-5 (Version None)
Quarter: 2007Q4

REPORT INFORMATION
  Report Type: 
  Country: None (occurrence: None)
  Receive Date: 20071116
  Receipt Date: 20070824
  Transmission Date: 20080405
  Serious: Yes (Hospitalization)
  Sender: FDA-Public Use
  Company Number: A0676144A

PATIENT
  Sex: Female

DRUGS (7)
  1. COREG CR [Suspect]
     Dosage: 25MG PER DAY
     Route: 048
  2. MOBIC [Concomitant]
  3. PAXIL [Concomitant]
  4. SYNTHROID [Concomitant]
  5. ACIPHEX [Concomitant]
  6. DIOVAN [Concomitant]
  7. NITROGLYCERIN [Concomitant]

REACTIONS (1)
  - BRADYCARDIA [None]
